FAERS Safety Report 21410818 (Version 2)
Quarter: 2022Q4

REPORT INFORMATION
  Report Type: Spontaneous
  Country: US (occurrence: US)
  Receive Date: 20221005
  Receipt Date: 20221018
  Transmission Date: 20230112
  Serious: Yes (Death)
  Sender: FDA-Public Use
  Company Number: US-NOVARTISPH-NVSC2022US224546

PATIENT
  Age: 63 Year
  Sex: Female

DRUGS (1)
  1. KISQALI [Suspect]
     Active Substance: RIBOCICLIB
     Indication: Breast cancer metastatic
     Dosage: 600 MG/KG, QD
     Route: 048
     Dates: start: 20220914

REACTIONS (4)
  - Pneumonitis [Fatal]
  - Pyrexia [Fatal]
  - Cough [Fatal]
  - Incorrect dose administered [Unknown]

NARRATIVE: CASE EVENT DATE: 20220920
